FAERS Safety Report 23450549 (Version 1)
Quarter: 2024Q1

REPORT INFORMATION
  Report Type: Spontaneous
  Country: US (occurrence: US)
  Receive Date: 20240129
  Receipt Date: 20240129
  Transmission Date: 20240409
  Serious: No
  Sender: FDA-Public Use
  Company Number: US-ABBVIE-5599827

PATIENT
  Sex: Female

DRUGS (2)
  1. BOTOX COSMETIC [Suspect]
     Active Substance: ONABOTULINUMTOXINA
     Indication: Skin wrinkling
     Dosage: FORM STRENGTH: 138 UNIT?TOTAL DOSE -138 DOSAGE FORM
     Route: 065
  2. BOTOX COSMETIC [Suspect]
     Active Substance: ONABOTULINUMTOXINA
     Indication: Skin wrinkling
     Dosage: FORM STRENGTH: 138 UNIT?TOTAL DOSE -138 DOSAGE FORM
     Route: 065

REACTIONS (3)
  - Swelling [Unknown]
  - Tenderness [Unknown]
  - Erythema [Unknown]
